FAERS Safety Report 15526565 (Version 4)
Quarter: 2020Q3

REPORT INFORMATION
  Report Type: Report from Study
  Country: IL (occurrence: IL)
  Receive Date: 20181018
  Receipt Date: 20191226
  Transmission Date: 20201105
  Serious: Yes (Death, Life-Threatening, Hospitalization)
  Sender: FDA-Public Use
  Company Number: IL-JNJFOC-20181014343

PATIENT
  Age: 77 Year
  Sex: Male
  Weight: 53 kg

DRUGS (29)
  1. PREDNISONE. [Concomitant]
     Active Substance: PREDNISONE
     Dosage: CYCLE 3
     Route: 048
     Dates: start: 20180920, end: 20180923
  2. PERCOCET [Concomitant]
     Active Substance: ACETAMINOPHEN\OXYCODONE HYDROCHLORIDE
     Indication: PAIN
     Route: 048
  3. COSOPT [Concomitant]
     Active Substance: DORZOLAMIDE HYDROCHLORIDE\TIMOLOL MALEATE
     Indication: GLAUCOMA
     Route: 047
  4. EZETROL [Concomitant]
     Active Substance: EZETIMIBE
     Indication: HYPERLIPIDAEMIA
     Route: 048
  5. XARELTO [Concomitant]
     Active Substance: RIVAROXABAN
     Indication: ATRIAL FIBRILLATION
     Route: 048
     Dates: start: 20180828, end: 20181010
  6. LIPITOR [Concomitant]
     Active Substance: ATORVASTATIN CALCIUM
     Indication: HYPERLIPIDAEMIA
     Route: 048
     Dates: end: 20181011
  7. URAMOX [Concomitant]
     Active Substance: ACETAZOLAMIDE
     Indication: GLAUCOMA
     Route: 048
  8. BORTEZOMIB. [Suspect]
     Active Substance: BORTEZOMIB
     Indication: PLASMA CELL MYELOMA
     Dosage: ON CYCLE 1 DAY 1, 4, 8, 11, 22, 25, 29, 32, CYCLE 2 DAY 1, 8, 22, 29 AND CYCLE 3 DAY 1 AND 8
     Route: 058
     Dates: start: 20180628, end: 20180927
  9. MELPHALAN. [Suspect]
     Active Substance: MELPHALAN
     Indication: PLASMA CELL MYELOMA
     Dosage: CYCLE 1
     Route: 048
     Dates: start: 20180628, end: 20180701
  10. MELPHALAN. [Suspect]
     Active Substance: MELPHALAN
     Dosage: CYCLE 3
     Route: 048
     Dates: start: 20180920, end: 20180923
  11. DEXAMETHASONE. [Concomitant]
     Active Substance: DEXAMETHASONE
     Indication: PLASMA CELL MYELOMA
     Route: 048
     Dates: start: 20180729
  12. ASPIRIN. [Concomitant]
     Active Substance: ASPIRIN
     Indication: MYOCARDIAL ISCHAEMIA
     Route: 048
     Dates: start: 20180718
  13. ALDACTONE [Concomitant]
     Active Substance: SPIRONOLACTONE
     Indication: CARDIAC FAILURE
     Route: 048
     Dates: start: 20180916
  14. FRUSEMIDE [Concomitant]
     Active Substance: FUROSEMIDE
     Indication: ORTHOPNOEA
  15. DARATUMUMAB [Suspect]
     Active Substance: DARATUMUMAB
     Indication: PLASMA CELL MYELOMA
     Dosage: ON CYCLE 1 DAY 1, 8, 15, 22, 29 AND 36, CYCLE 2 DAY 1, DAY 22, CYCLE 3 DAY 1
     Route: 058
     Dates: start: 20180628, end: 20180920
  16. PREDNISONE. [Concomitant]
     Active Substance: PREDNISONE
     Dosage: CYCLE 2
     Route: 048
     Dates: start: 20180810, end: 20180812
  17. FRUSEMIDE [Concomitant]
     Active Substance: FUROSEMIDE
     Indication: OEDEMA PERIPHERAL
     Route: 048
     Dates: start: 20180917
  18. VITAMIN D [Concomitant]
     Active Substance: VITAMIN D NOS
     Indication: OSTEOPOROSIS
     Route: 048
     Dates: start: 20180914
  19. MELPHALAN. [Suspect]
     Active Substance: MELPHALAN
     Dosage: CYCLE 2
     Route: 048
     Dates: start: 20180809, end: 20180812
  20. PREDNISONE. [Concomitant]
     Active Substance: PREDNISONE
     Indication: PLASMA CELL MYELOMA
     Dosage: CYCLE 1
     Route: 048
     Dates: start: 20180629, end: 20180701
  21. ASPIRIN. [Concomitant]
     Active Substance: ASPIRIN
     Indication: MYOCARDIAL ISCHAEMIA
     Route: 048
  22. TRAVATAN [Concomitant]
     Active Substance: TRAVOPROST
     Indication: GLAUCOMA
     Route: 047
  23. ZOVIRAX [Concomitant]
     Active Substance: ACYCLOVIR
     Indication: HERPES VIRUS INFECTION
     Route: 048
     Dates: start: 20180703
  24. RESPRIM [Concomitant]
     Active Substance: SULFAMETHOXAZOLE\TRIMETHOPRIM
     Indication: ANTIFUNGAL PROPHYLAXIS
     Route: 048
     Dates: start: 20180712
  25. AREDIA [Concomitant]
     Active Substance: PAMIDRONATE DISODIUM
     Indication: OSTEOPOROSIS
     Route: 042
     Dates: start: 20180507
  26. LENALIDOMIDE [Concomitant]
     Active Substance: LENALIDOMIDE
     Indication: PLASMA CELL MYELOMA
     Route: 065
  27. ALPHAGAN P [Concomitant]
     Active Substance: BRIMONIDINE TARTRATE
     Indication: GLAUCOMA
     Route: 047
  28. CILARIL [Concomitant]
     Active Substance: CILAZAPRIL ANHYDROUS
     Indication: HYPERTENSION
     Route: 048
  29. VITAMIN B12 [Concomitant]
     Active Substance: CYANOCOBALAMIN
     Indication: ANAEMIA
     Route: 048
     Dates: start: 20180914

REACTIONS (1)
  - Pneumonitis [Fatal]

NARRATIVE: CASE EVENT DATE: 20181009
